FAERS Safety Report 23585378 (Version 2)
Quarter: 2024Q1

REPORT INFORMATION
  Report Type: Spontaneous
  Country: BR (occurrence: BR)
  Receive Date: 20240301
  Receipt Date: 20240306
  Transmission Date: 20240410
  Serious: Yes (Other)
  Sender: FDA-Public Use
  Company Number: BR-TAKEDA-2023TUS109239

PATIENT
  Sex: Female
  Weight: 48 kg

DRUGS (2)
  1. MESALAMINE [Suspect]
     Active Substance: MESALAMINE
     Indication: Radiation proctitis
     Dosage: 1000 MILLIGRAM, QD
     Route: 065
     Dates: start: 202209
  2. MESALAMINE [Suspect]
     Active Substance: MESALAMINE
     Indication: Rectal haemorrhage

REACTIONS (12)
  - Adverse event [Unknown]
  - Product colour issue [Unknown]
  - Product leakage [Unknown]
  - Poor quality product administered [Unknown]
  - Off label use [Unknown]
  - Malabsorption [Unknown]
  - Drug ineffective [Unknown]
  - Product quality issue [Unknown]
  - Product storage error [Unknown]
  - Memory impairment [Unknown]
  - Product physical issue [Unknown]
  - Product dose omission issue [Unknown]
